FAERS Safety Report 19967615 (Version 1)
Quarter: 2021Q4

REPORT INFORMATION
  Report Type: Report from Study
  Country: None (occurrence: CA)
  Receive Date: 20211019
  Receipt Date: 20211019
  Transmission Date: 20220303
  Serious: Yes (Death, Hospitalization)
  Sender: FDA-Public Use
  Company Number: CA-JNJFOC-20201225408

PATIENT
  Age: 77 Year
  Sex: Male

DRUGS (3)
  1. IMBRUVICA [Suspect]
     Active Substance: IBRUTINIB
     Indication: Waldenstrom^s macroglobulinaemia
     Route: 048
     Dates: start: 202011
  2. IMBRUVICA [Suspect]
     Active Substance: IBRUTINIB
     Indication: Pulmonary fibrosis
     Dosage: DECREASED DOSE, 1 CAPSULE DAILY
     Route: 048
  3. IMBRUVICA [Suspect]
     Active Substance: IBRUTINIB
     Route: 048
     Dates: start: 20201020, end: 20210914

REACTIONS (3)
  - Death [Fatal]
  - Cerebrovascular accident [Recovering/Resolving]
  - Hospitalisation [Unknown]

NARRATIVE: CASE EVENT DATE: 20201201
